FAERS Safety Report 15367055 (Version 1)
Quarter: 2018Q3

REPORT INFORMATION
  Report Type: Spontaneous
  Country: US (occurrence: US)
  Receive Date: 20180903
  Receipt Date: 20180903
  Transmission Date: 20181010
  Serious: Yes (Other)
  Sender: FDA-Public Use
  Company Number: None

PATIENT
  Age: 57 Year
  Sex: Female
  Weight: 135 kg

DRUGS (9)
  1. METRONIDAZOLE. [Concomitant]
     Active Substance: METRONIDAZOLE
  2. FISH OIL [Concomitant]
     Active Substance: FISH OIL
  3. LABETALOL [Concomitant]
     Active Substance: LABETALOL\LABETALOL HYDROCHLORIDE
  4. LORATADINE. [Concomitant]
     Active Substance: LORATADINE
  5. VITAMIN D3 [Concomitant]
     Active Substance: CHOLECALCIFEROL
  6. ATORVASTATIN [Concomitant]
     Active Substance: ATORVASTATIN
  7. CLOPIDOGREL [Concomitant]
     Active Substance: CLOPIDOGREL BISULFATE
  8. MULTIVITAMIN [Concomitant]
     Active Substance: VITAMINS
  9. RX 4260665?07437 LEVOFLOXACIN 750MG TABLETS?NO LONGER HAVE THE BOTTLE [Suspect]
     Active Substance: LEVOFLOXACIN SODIUM
     Indication: DIVERTICULITIS
     Dosage: ?          QUANTITY:1 TABLET(S);?
     Route: 048
     Dates: start: 20180807, end: 20180813

REACTIONS (14)
  - Muscle strain [None]
  - Confusional state [None]
  - Insomnia [None]
  - Nerve compression [None]
  - Neck pain [None]
  - Depression [None]
  - Back pain [None]
  - Bone pain [None]
  - Arthralgia [None]
  - Musculoskeletal pain [None]
  - Pain [None]
  - Tendon pain [None]
  - Anxiety [None]
  - Feeling abnormal [None]

NARRATIVE: CASE EVENT DATE: 20180808
